FAERS Safety Report 4360056-1 (Version None)
Quarter: 2004Q2

REPORT INFORMATION
  Report Type: 
  Country: None (occurrence: None)
  Receive Date: 20040513
  Receipt Date: 20040428
  Transmission Date: 20050107
  Serious: Yes (Other)
  Sender: FDA-Public Use
  Company Number: 2004-BP-03347BP

PATIENT
  Age: 56 Year
  Sex: Male

DRUGS (10)
  1. FLOMAX [Suspect]
     Indication: BENIGN PROSTATIC HYPERPLASIA
     Dosage: 0.4 MG (0.4 MG, 1 TA DAILY), PO
     Route: 048
     Dates: start: 20040415
  2. ZESTRIL [Concomitant]
  3. ATENOLOL [Concomitant]
  4. SERZONE [Concomitant]
  5. PRAVACHOL [Concomitant]
  6. COUMADIN [Concomitant]
  7. XANAX [Concomitant]
  8. ZETIA [Concomitant]
  9. PROPYLTHIOURACIL [Concomitant]
  10. CHOLESTYRAMINE [Concomitant]

REACTIONS (2)
  - HYPOTENSION [None]
  - PROSTATE CANCER [None]
